FAERS Safety Report 5791691-1 (Version None)
Quarter: 2008Q2

REPORT INFORMATION
  Report Type: 
  Country: None (occurrence: None)
  Receive Date: 20080626
  Receipt Date: 20080307
  Transmission Date: 20081010
  Serious: No
  Sender: FDA-Public Use
  Company Number: A0714061A

PATIENT

DRUGS (1)
  1. ALLI [Suspect]
     Indication: DRUG USE FOR UNKNOWN INDICATION
     Dates: start: 20080101

REACTIONS (4)
  - ADVERSE DRUG REACTION [None]
  - CHILLS [None]
  - DISTURBANCE IN ATTENTION [None]
  - HYPERHIDROSIS [None]
